FAERS Safety Report 24048949 (Version 2)
Quarter: 2024Q3

REPORT INFORMATION
  Report Type: Report from Study
  Country: US (occurrence: US)
  Receive Date: 20240704
  Receipt Date: 20240729
  Transmission Date: 20241017
  Serious: Yes (Hospitalization)
  Sender: BIOVITRUM
  Company Number: US-BIOVITRUM-2024-US-009208

PATIENT
  Age: 68 Year
  Sex: Male
  Weight: 89.2 kg

DRUGS (12)
  1. DOPTELET [Suspect]
     Active Substance: AVATROMBOPAG MALEATE
     Indication: Immune thrombocytopenia
     Dosage: DAILY
     Route: 048
  2. DOPTELET [Suspect]
     Active Substance: AVATROMBOPAG MALEATE
     Dosage: DAILY
     Route: 048
  3. DOPTELET [Suspect]
     Active Substance: AVATROMBOPAG MALEATE
     Dosage: DAILY
     Route: 048
     Dates: start: 20240121
  4. DOPTELET [Suspect]
     Active Substance: AVATROMBOPAG MALEATE
     Dosage: DAILY
     Route: 048
     Dates: start: 20240221
  5. ROSUVASTATIN [Suspect]
     Active Substance: ROSUVASTATIN\ROSUVASTATIN CALCIUM
     Indication: Product used for unknown indication
  6. ACYCLOVIR [Concomitant]
     Active Substance: ACYCLOVIR
     Indication: Product used for unknown indication
  7. PREDNISONE [Concomitant]
     Active Substance: PREDNISONE
     Indication: Product used for unknown indication
  8. SULFAMETHOXAZOLE\TRIMETHOPRIM [Concomitant]
     Active Substance: SULFAMETHOXAZOLE\TRIMETHOPRIM
     Indication: Product used for unknown indication
  9. FAMOTIDINE [Concomitant]
     Active Substance: FAMOTIDINE
     Indication: Product used for unknown indication
  10. NEXLETOL [Concomitant]
     Active Substance: BEMPEDOIC ACID
     Indication: Product used for unknown indication
  11. CALCIUM 600-D3 PLUS [Concomitant]
     Indication: Product used for unknown indication
  12. ZARXIO [Concomitant]
     Active Substance: FILGRASTIM-SNDZ
     Indication: Product used for unknown indication
     Dosage: 480MCG/0.8SYRINGE

REACTIONS (2)
  - Platelet count decreased [Recovering/Resolving]
  - Drug interaction [Recovered/Resolved]
